FAERS Safety Report 4271792-X (Version None)
Quarter: 2004Q1

REPORT INFORMATION
  Report Type: 
  Country: None (occurrence: None)
  Receive Date: 20040115
  Receipt Date: 20031121
  Transmission Date: 20041129
  Serious: Yes (Other)
  Sender: FDA-Public Use
  Company Number: NZ-GLAXOSMITHKLINE-B0315720A

PATIENT
  Age: 60 Year
  Sex: Female
  Weight: 129 kg

DRUGS (5)
  1. PAROXETINE HCL [Suspect]
     Indication: OBSESSIVE-COMPULSIVE DISORDER
     Dosage: 20MG PER DAY
     Route: 048
     Dates: end: 20020201
  2. SIBUTRAMINE HYDROCHLORIDE [Concomitant]
     Indication: OBESITY
     Dosage: 10MG PER DAY
     Dates: start: 20020206, end: 20030227
  3. OMEPRAZOLE [Concomitant]
     Indication: ARTHRITIS
     Dosage: 20MG AT NIGHT
     Route: 048
  4. CELECOXIB [Concomitant]
     Route: 048
  5. PROCHLORPERAZINE [Concomitant]
     Dosage: 5MG THREE TIMES PER DAY

REACTIONS (7)
  - ANGER [None]
  - ANXIETY [None]
  - CONVERSION DISORDER [None]
  - DRUG WITHDRAWAL SYNDROME [None]
  - HAEMATEMESIS [None]
  - MOOD SWINGS [None]
  - NAUSEA [None]
